FAERS Safety Report 5479581-5 (Version None)
Quarter: 2007Q4

REPORT INFORMATION
  Report Type: 
  Country: None (occurrence: None)
  Receive Date: 20071008
  Receipt Date: 20071003
  Transmission Date: 20080405
  Serious: Yes (Hospitalization)
  Sender: FDA-Public Use
  Company Number: US-BRISTOL-MYERS SQUIBB COMPANY-13927702

PATIENT
  Age: 53 Year
  Sex: Female
  Weight: 111 kg

DRUGS (13)
  1. CISPLATIN [Suspect]
     Indication: SQUAMOUS CELL CARCINOMA
     Dates: start: 20070807, end: 20070829
  2. RADIATION THERAPY [Suspect]
     Indication: SQUAMOUS CELL CARCINOMA
     Dosage: DOSAGE FORM EQUALS GY.
     Dates: end: 20070917
  3. ESTROGEN [Concomitant]
     Dosage: 2-4 GRAMS DAILY
  4. FENTANYL [Concomitant]
     Indication: PAIN
  5. HYDROCODONE BITARTRATE AND ACETAMINOPHEN [Concomitant]
     Indication: PAIN
     Dosage: 5/500 MG
  6. LEXAPRO [Concomitant]
  7. MAGNESIUM OXIDE [Concomitant]
  8. MICARDIS HCT [Concomitant]
     Dosage: 40/12.5 MG
  9. ONDANSETRON [Concomitant]
  10. PREVACID [Concomitant]
     Route: 048
  11. PROCHLORPERAZINE [Concomitant]
     Indication: VOMITING
  12. SENNOSIDES [Concomitant]
  13. ULCEREASE [Concomitant]

REACTIONS (5)
  - ANAEMIA [None]
  - DERMATITIS [None]
  - FEBRILE NEUTROPENIA [None]
  - STOMATITIS [None]
  - URINARY TRACT INFECTION [None]
